FAERS Safety Report 11224132 (Version 4)
Quarter: 2015Q3

REPORT INFORMATION
  Report Type: Spontaneous
  Country: US (occurrence: US)
  Receive Date: 20150629
  Receipt Date: 20150923
  Transmission Date: 20151125
  Serious: Yes (Hospitalization)
  Sender: FDA-Public Use
  Company Number: US-UNITED THERAPEUTICS-UNT-2015-007636

PATIENT
  Age: 61 Year
  Sex: Female
  Weight: 58.96 kg

DRUGS (2)
  1. REVATIO [Concomitant]
     Active Substance: SILDENAFIL CITRATE
     Indication: PRODUCT USED FOR UNKNOWN INDICATION
  2. REMODULIN [Suspect]
     Active Substance: TREPROSTINIL
     Indication: PULMONARY ARTERIAL HYPERTENSION
     Dosage: 0.0145 ?G/KG, CONTINUING
     Route: 041
     Dates: start: 20141121

REACTIONS (3)
  - Gout [Unknown]
  - Adverse event [Unknown]
  - Bacteraemia [Unknown]

NARRATIVE: CASE EVENT DATE: 20150622
